FAERS Safety Report 15427398 (Version 1)
Quarter: 2018Q3

REPORT INFORMATION
  Report Type: Spontaneous
  Country: US (occurrence: US)
  Receive Date: 20180925
  Receipt Date: 20180925
  Transmission Date: 20181010
  Serious: No
  Sender: FDA-Public Use
  Company Number: US-SA-2018SA265845

PATIENT
  Sex: Male

DRUGS (1)
  1. LOVENOX [Suspect]
     Active Substance: ENOXAPARIN SODIUM
     Dosage: 40 MG, QD

REACTIONS (5)
  - Feeling abnormal [Unknown]
  - Flushing [Unknown]
  - Feeling hot [Unknown]
  - Hypoaesthesia [Unknown]
  - Paraesthesia [Unknown]
